FAERS Safety Report 5416440-8 (Version None)
Quarter: 2007Q3

REPORT INFORMATION
  Report Type: 
  Country: None (occurrence: None)
  Receive Date: 20070814
  Receipt Date: 20070802
  Transmission Date: 20080115
  Serious: Yes (Other)
  Sender: FDA-Public Use
  Company Number: 1-15186001 /MED-07159

PATIENT
  Age: 59 Year
  Sex: Female

DRUGS (3)
  1. GABAPENTIN [Suspect]
     Indication: BACK PAIN
     Dosage: 300MG DAILY, ORAL
     Route: 048
     Dates: start: 19990101
  2. PAROXETINE [Concomitant]
  3. CHLORPROMAZINE [Concomitant]

REACTIONS (1)
  - RENAL IMPAIRMENT [None]
